FAERS Safety Report 22642667 (Version 1)
Quarter: 2023Q2

REPORT INFORMATION
  Report Type: Spontaneous
  Country: US (occurrence: US)
  Receive Date: 20230627
  Receipt Date: 20230627
  Transmission Date: 20230721
  Serious: No
  Sender: FDA-Public Use
  Company Number: US-drreddys-SPO/USA/23/0166423

PATIENT
  Age: 37 Year
  Sex: Female
  Weight: 50 kg

DRUGS (2)
  1. CAPECITABINE [Suspect]
     Active Substance: CAPECITABINE
     Indication: Colorectal cancer stage III
     Dosage: TWICE DAILY BY MOUTH FOR THE FIRST 2 WEEKS OF 21-DAY CYCLES AT 1,000 MG/M2
     Route: 048
     Dates: start: 202109
  2. OXALIPLATIN [Suspect]
     Active Substance: OXALIPLATIN
     Indication: Colorectal cancer stage III
     Dosage: 130 MG/M2 EVERY 3 WEEKS
     Dates: start: 202109

REACTIONS (1)
  - Lactation insufficiency [Unknown]

NARRATIVE: CASE EVENT DATE: 20210101
